FAERS Safety Report 4317934-9 (Version None)
Quarter: 2004Q1

REPORT INFORMATION
  Report Type: 
  Country: None (occurrence: None)
  Receive Date: 20040316
  Receipt Date: 20040102
  Transmission Date: 20041129
  Serious: Yes (Death, Hospitalization)
  Sender: FDA-Public Use
  Company Number: US-GLAXOSMITHKLINE-A0491783A

PATIENT
  Age: 82 Year
  Sex: Female

DRUGS (9)
  1. AVANDIA [Suspect]
     Indication: DIABETES MELLITUS
     Dosage: 4MG PER DAY
     Route: 048
     Dates: start: 20020701, end: 20030119
  2. ACTOS [Suspect]
     Route: 048
     Dates: end: 20030119
  3. LASIX [Concomitant]
     Dosage: 40MG PER DAY
     Route: 048
  4. PROTONIX [Concomitant]
     Dosage: 40MG PER DAY
     Route: 048
  5. PAXIL [Concomitant]
     Dosage: 20MG PER DAY
     Route: 048
  6. VITAMIN D [Concomitant]
     Dosage: .125MG PER DAY
     Route: 048
  7. LESCOL [Concomitant]
     Dosage: 40MG AT NIGHT
     Route: 048
  8. ACTONEL [Concomitant]
     Dosage: 35MG WEEKLY
     Route: 048
  9. CELEBREX [Concomitant]
     Dosage: 200MG AS REQUIRED
     Route: 048

REACTIONS (22)
  - ATELECTASIS [None]
  - CARDIAC FAILURE CONGESTIVE [None]
  - CARDIOMEGALY [None]
  - CHEST PAIN [None]
  - DEPRESSED LEVEL OF CONSCIOUSNESS [None]
  - DEPRESSION [None]
  - DILATATION ATRIAL [None]
  - DYSPNOEA [None]
  - ECHOCARDIOGRAM ABNORMAL [None]
  - FACIAL PALSY [None]
  - HAEMOTHORAX [None]
  - MENTAL IMPAIRMENT [None]
  - MITRAL VALVE INCOMPETENCE [None]
  - OSTEOPENIA [None]
  - PLEURAL EFFUSION [None]
  - PNEUMONIA [None]
  - PNEUMOTHORAX [None]
  - RENAL FAILURE ACUTE [None]
  - RESPIRATORY FAILURE [None]
  - TRICUSPID VALVE INCOMPETENCE [None]
  - VENOUS INSUFFICIENCY [None]
  - VENTRICULAR HYPERTROPHY [None]
